FAERS Safety Report 4481213-X (Version None)
Quarter: 2004Q3

REPORT INFORMATION
  Report Type: 
  Country: None (occurrence: None)
  Receive Date: 20040923
  Receipt Date: 20040713
  Transmission Date: 20050211
  Serious: No
  Sender: FDA-Public Use
  Company Number: USA040156593

PATIENT
  Age: 71 Year
  Sex: Female
  Weight: 54 kg

DRUGS (9)
  1. FORTEO [Suspect]
     Indication: OSTEOPOROSIS
     Dosage: 20 UG DAY
     Dates: start: 20030902
  2. LEVOXYL [Concomitant]
  3. GENOTROPIN [Concomitant]
  4. CALCIUM [Concomitant]
  5. ACIPHEX [Concomitant]
  6. FOSAMAX [Concomitant]
  7. ACTONEL [Concomitant]
  8. APO-METOPROLOL (METOPROLOL TARTRATE) [Concomitant]
  9. PROTONIX [Concomitant]

REACTIONS (4)
  - BACK PAIN [None]
  - PAIN IN EXTREMITY [None]
  - SCOLIOSIS [None]
  - TOOTHACHE [None]
